FAERS Safety Report 14007070 (Version 1)
Quarter: 2017Q3

REPORT INFORMATION
  Report Type: Spontaneous
  Country: US (occurrence: US)
  Receive Date: 20170923
  Receipt Date: 20170923
  Transmission Date: 20171128
  Serious: Yes (Hospitalization)
  Sender: FDA-Public Use
  Company Number: None

PATIENT
  Sex: Male
  Weight: 40.5 kg

DRUGS (2)
  1. POLYETHYLENE GLYCOL [Suspect]
     Active Substance: POLYETHYLENE GLYCOLS
     Indication: CONSTIPATION
     Route: 048
  2. POLYETHYLENE GLYCOL [Suspect]
     Active Substance: POLYETHYLENE GLYCOLS
     Indication: FAECALOMA
     Route: 048

REACTIONS (6)
  - Pyrexia [None]
  - Suicidal ideation [None]
  - Anger [None]
  - Lymphadenopathy [None]
  - Depression [None]
  - Rash [None]

NARRATIVE: CASE EVENT DATE: 20090101
